FAERS Safety Report 9948701 (Version 2)
Quarter: 2014Q2

REPORT INFORMATION
  Report Type: Spontaneous
  Country: US (occurrence: None)
  Receive Date: 20140122
  Receipt Date: 20140421
  Transmission Date: 20141212
  Serious: Yes (Other)
  Sender: FDA-Public Use
  Company Number: AEGR000241

PATIENT
  Age: 44 Year
  Sex: Male
  Weight: 99.8 kg

DRUGS (3)
  1. JUXTAPID [Suspect]
     Indication: TYPE IIA HYPERLIPIDAEMIA
     Dosage: 5 MG, QD , ORAL
     Route: 048
     Dates: start: 20130828, end: 201311
  2. LOVASTATIN (LOVASTATIN) [Concomitant]
  3. LISINOPRIL/HCTZ (HYDROCHLOROTHIAZIDE, LISINOPRIL) [Concomitant]

REACTIONS (2)
  - Weight decreased [None]
  - Hepatic enzyme increased [None]
